FAERS Safety Report 16081066 (Version 1)
Quarter: 2019Q1

REPORT INFORMATION
  Report Type: Spontaneous
  Country: IT (occurrence: IT)
  Receive Date: 20190316
  Receipt Date: 20190316
  Transmission Date: 20190418
  Serious: Yes (Hospitalization)
  Sender: FDA-Public Use
  Company Number: IT-TEVA-2019-IT-1023646

PATIENT
  Age: 73 Year
  Sex: Female

DRUGS (5)
  1. TICLOPIDINE [Suspect]
     Active Substance: TICLOPIDINE
     Indication: CEREBRAL INFARCTION
     Dosage: 500 MILLIGRAM DAILY;
     Route: 048
     Dates: start: 20090101, end: 20190224
  2. FOLINA [Concomitant]
     Active Substance: FOLIC ACID
  3. NOVONORM [Concomitant]
     Active Substance: REPAGLINIDE
  4. TOTALIP [Concomitant]
     Active Substance: ATORVASTATIN
  5. ZESTORETIC [Concomitant]
     Active Substance: HYDROCHLOROTHIAZIDE\LISINOPRIL

REACTIONS (5)
  - Asthenia [Not Recovered/Not Resolved]
  - Drug ineffective [Not Recovered/Not Resolved]
  - Colitis ischaemic [Not Recovered/Not Resolved]
  - Diarrhoea [Not Recovered/Not Resolved]
  - Abdominal pain [Not Recovered/Not Resolved]

NARRATIVE: CASE EVENT DATE: 20190224
